FAERS Safety Report 9262227 (Version 4)
Quarter: 2013Q3

REPORT INFORMATION
  Report Type: Spontaneous
  Country: US (occurrence: US)
  Receive Date: 20130430
  Receipt Date: 20130826
  Transmission Date: 20140515
  Serious: Yes (Hospitalization)
  Sender: FDA-Public Use
  Company Number: US-BIOGENIDEC-2013BI037452

PATIENT
  Age: 37 Year
  Sex: Female

DRUGS (1)
  1. TYSABRI [Suspect]
     Indication: CROHN^S DISEASE
     Route: 042
     Dates: start: 20121001

REACTIONS (5)
  - Smear cervix abnormal [Recovered/Resolved with Sequelae]
  - Abscess intestinal [Not Recovered/Not Resolved]
  - Uterine abscess [Not Recovered/Not Resolved]
  - Abdominal pain lower [Not Recovered/Not Resolved]
  - Back pain [Not Recovered/Not Resolved]
